FAERS Safety Report 16479793 (Version 1)
Quarter: 2019Q2

REPORT INFORMATION
  Report Type: Report from Study
  Country: US (occurrence: US)
  Receive Date: 20190626
  Receipt Date: 20190626
  Transmission Date: 20190711
  Serious: Yes (Other)
  Sender: FDA-Public Use
  Company Number: US-GILEAD-2019-0415327

PATIENT
  Age: 90 Year
  Sex: Female

DRUGS (14)
  1. ALBUTEROL [SALBUTAMOL SULFATE] [Concomitant]
     Active Substance: ALBUTEROL SULFATE
  2. FOLIC ACID. [Concomitant]
     Active Substance: FOLIC ACID
  3. PROBIOTIC BLEND [Concomitant]
  4. VITAMIN B12 [Concomitant]
     Active Substance: CYANOCOBALAMIN
  5. AMBRISENTAN [Suspect]
     Active Substance: AMBRISENTAN
     Indication: PULMONARY HYPERTENSION
     Dosage: 5 MG, QD
     Route: 065
     Dates: start: 20141024
  6. CALCIUM [Concomitant]
     Active Substance: CALCIUM
  7. PROLIA [Concomitant]
     Active Substance: DENOSUMAB
  8. COMBIVENT [Concomitant]
     Active Substance: ALBUTEROL SULFATE\IPRATROPIUM BROMIDE
  9. VITAMIN D3 [Concomitant]
     Active Substance: CHOLECALCIFEROL
  10. ASPRIN [Concomitant]
     Active Substance: ASPIRIN
  11. MAGNESIUM [Concomitant]
     Active Substance: MAGNESIUM
  12. METOPROLOL. [Concomitant]
     Active Substance: METOPROLOL
  13. NEXIUM [Concomitant]
     Active Substance: ESOMEPRAZOLE MAGNESIUM
  14. SIMVASTATIN. [Concomitant]
     Active Substance: SIMVASTATIN

REACTIONS (1)
  - Dementia [Not Recovered/Not Resolved]

NARRATIVE: CASE EVENT DATE: 201901
